FAERS Safety Report 9913896 (Version 1)
Quarter: 2014Q1

REPORT INFORMATION
  Report Type: Spontaneous
  Country: US (occurrence: None)
  Receive Date: 20140219
  Receipt Date: 20140219
  Transmission Date: 20141002
  Serious: No
  Sender: FDA-Public Use
  Company Number: None

PATIENT
  Age: 64 Year
  Sex: Female
  Weight: 57.61 kg

DRUGS (1)
  1. VENLAFAXINE HCL ER [Suspect]
     Indication: DEPRESSION
     Dosage: 1 PILL
     Route: 048
     Dates: start: 20140102, end: 20140107

REACTIONS (12)
  - Hyperhidrosis [None]
  - Feeling cold [None]
  - Tremor [None]
  - Nightmare [None]
  - Abnormal dreams [None]
  - Headache [None]
  - Dyspnoea [None]
  - Dizziness [None]
  - Nausea [None]
  - Confusional state [None]
  - Anxiety [None]
  - Panic reaction [None]
